FAERS Safety Report 8621521-1 (Version None)
Quarter: 2012Q3

REPORT INFORMATION
  Report Type: 
  Country: None (occurrence: None)
  Receive Date: 20120824
  Receipt Date: 20120426
  Transmission Date: 20120928
  Serious: Yes (Other)
  Sender: FDA-Public Use
  Company Number: JP-009507513-1205USA00050

PATIENT

DRUGS (10)
  1. JANUVIA [Suspect]
     Indication: DIABETES MELLITUS
     Dosage: 50 MG, QD
     Route: 048
     Dates: start: 20110117, end: 20120401
  2. KINEDAK [Concomitant]
     Indication: DIABETIC NEUROPATHY
     Dosage: DOSAGE IS UNCERTAIN DURING A DAY
     Route: 048
  3. GLIMICRON [Concomitant]
     Indication: TYPE 2 DIABETES MELLITUS
     Dosage: 1 MG, QD
     Route: 048
     Dates: start: 20070401
  4. METFORMIN HCL [Concomitant]
     Indication: DIABETES MELLITUS
     Dosage: 750 MG, QD
     Route: 048
  5. MICARDIS [Concomitant]
     Indication: HYPERTENSION
     Dosage: 40 MG, UNK
     Route: 048
     Dates: start: 20090101
  6. FERROUS CITRATE [Concomitant]
     Indication: ANAEMIA
     Dosage: DOSAGE IS UNCERTAIN DURING A DAY
     Route: 048
     Dates: start: 20120301
  7. GLUCOBAY [Concomitant]
     Indication: DIABETES MELLITUS
     Dosage: 100 G, TID
     Route: 048
  8. LIVALO [Concomitant]
     Indication: DYSLIPIDAEMIA
     Dosage: 1 MG, QD
     Route: 048
     Dates: start: 20090101
  9. PURSENNID (SENNOSIDES) [Concomitant]
     Dosage: DOSAGE IS UNCERTAIN DURING A DAY
     Route: 048
  10. ASPIRIN [Concomitant]
     Dosage: 100 MG, QD
     Route: 048
     Dates: start: 20090101

REACTIONS (1)
  - MUSCULOSKELETAL PAIN [None]
